FAERS Safety Report 10565829 (Version 8)
Quarter: 2016Q4

REPORT INFORMATION
  Report Type: Report from Study
  Country: DE (occurrence: DE)
  Receive Date: 20141105
  Receipt Date: 20161028
  Transmission Date: 20170206
  Serious: Yes (Death, Hospitalization, Other)
  Sender: FDA-Public Use
  Company Number: PHHY2014DE139668

PATIENT
  Sex: Female
  Weight: 54 kg

DRUGS (4)
  1. PALLADON [Concomitant]
     Active Substance: HYDROMORPHONE
     Indication: PAIN
     Dosage: 8 MG, QD
     Route: 048
  2. AFINITOR [Suspect]
     Active Substance: EVEROLIMUS
     Indication: BREAST CANCER METASTATIC
     Dosage: 10 MG, QD (ONCE DAILY)
     Route: 048
     Dates: start: 20140714, end: 20141015
  3. BISOPROLOL [Concomitant]
     Active Substance: BISOPROLOL
     Indication: BLOOD PRESSURE MEASUREMENT
     Dosage: 2.5 MG, QD
     Route: 048
  4. EXEMESTANE ACTAVIS [Suspect]
     Active Substance: EXEMESTANE
     Indication: BREAST CANCER METASTATIC
     Dosage: 25 MG, QD (ONCE DAILY)
     Route: 048
     Dates: start: 20140714, end: 20141013

REACTIONS (17)
  - Urinary tract infection [Recovered/Resolved]
  - Body temperature increased [Unknown]
  - General physical health deterioration [Recovering/Resolving]
  - Pneumonia [Recovering/Resolving]
  - Febrile neutropenia [Recovered/Resolved]
  - Anaemia [Recovered/Resolved]
  - Pyrexia [Recovering/Resolving]
  - Death [Fatal]
  - Circulatory collapse [Not Recovered/Not Resolved]
  - Dehydration [Not Recovered/Not Resolved]
  - Decreased appetite [Recovering/Resolving]
  - Intracranial aneurysm [Unknown]
  - Nausea [Recovering/Resolving]
  - Abdominal pain [Recovering/Resolving]
  - Leukopenia [Recovered/Resolved]
  - Constipation [Recovering/Resolving]
  - Escherichia infection [Recovered/Resolved]

NARRATIVE: CASE EVENT DATE: 20140909
